FAERS Safety Report 5729261-3 (Version None)
Quarter: 2008Q2

REPORT INFORMATION
  Report Type: 
  Country: None (occurrence: None)
  Receive Date: 20080506
  Receipt Date: 20080425
  Transmission Date: 20081010
  Serious: Yes (Other)
  Sender: FDA-Public Use
  Company Number: NO-NOVOPROD-274900

PATIENT
  Sex: Female

DRUGS (4)
  1. INSULIN DETEMIR PENFILL [Suspect]
     Indication: TYPE 1 DIABETES MELLITUS
     Route: 058
     Dates: start: 20070911, end: 20070919
  2. NOVOLOG [Suspect]
     Indication: TYPE 1 DIABETES MELLITUS
     Route: 058
     Dates: start: 20070911, end: 20070924
  3. LANTUS [Concomitant]
     Route: 058
  4. HUMALOG [Concomitant]
     Route: 058

REACTIONS (1)
  - RETINOPATHY [None]
